FAERS Safety Report 7270118-7 (Version None)
Quarter: 2011Q1

REPORT INFORMATION
  Report Type: 
  Country: None (occurrence: None)
  Receive Date: 20110125
  Receipt Date: 20110110
  Transmission Date: 20110831
  Serious: Yes (Other)
  Sender: FDA-Public Use
  Company Number: IT-2011-00811

PATIENT
  Sex: Male

DRUGS (2)
  1. CISPLATIN EBEWE. MFR: NOT SPECIFIED [Suspect]
     Indication: LUNG NEOPLASM MALIGNANT
     Dosage: 150 MG IV
     Route: 042
     Dates: start: 20101023, end: 20101023
  2. NAVELBINE [Suspect]
     Indication: LUNG NEOPLASM MALIGNANT
     Dosage: 45 MG IV
     Route: 042
     Dates: start: 20101028, end: 20101028

REACTIONS (2)
  - DEHYDRATION [None]
  - RENAL FAILURE [None]
